FAERS Safety Report 8800866 (Version 1)
Quarter: 2012Q4

REPORT INFORMATION
  Report Type: 
  Country: FR (occurrence: FR)
  Receive Date: 20120921
  Receipt Date: 20120921
  Transmission Date: 20130627
  Serious: Yes (Hospitalization)
  Sender: FDA-Public Use
  Company Number: FR-PFIZER INC-2012227587

PATIENT
  Age: 55 Year
  Sex: Female

DRUGS (10)
  1. ZYVOXID [Suspect]
     Indication: URINARY TRACT INFECTION
     Dosage: 1 DF, 1x/day
     Route: 048
     Dates: start: 20120802, end: 20120810
  2. ALDACTONE [Suspect]
     Indication: ASCITES
     Dosage: 1 DF, 1x/day
     Route: 048
     Dates: start: 20120728, end: 20120807
  3. CANCIDAS [Suspect]
     Indication: SYSTEMIC CANDIDA
     Dosage: 35 mg, 1x/day
     Route: 042
     Dates: start: 20120713, end: 20120731
  4. AVLOCARDYL [Concomitant]
     Dosage: 160 mg, 2x/day
  5. TARDYFERON [Concomitant]
  6. PARIET [Concomitant]
  7. APIDRA [Concomitant]
  8. LANTUS [Concomitant]
  9. METRONIDAZOLE [Concomitant]
     Indication: SYSTEMIC CANDIDA
     Dosage: UNK
     Dates: start: 20120724, end: 20120727
  10. AMOXICILLIN [Concomitant]
     Indication: URINARY TRACT INFECTION
     Dosage: UNK
     Dates: start: 20120801, end: 20120802

REACTIONS (2)
  - Thrombocytopenia [Recovered/Resolved]
  - Anaemia [Recovered/Resolved]
